FAERS Safety Report 9176123 (Version 1)
Quarter: 2012Q4

REPORT INFORMATION
  Report Type: 
  Country: US (occurrence: US)
  Receive Date: 20120919
  Receipt Date: 20120919
  Transmission Date: 20130627
  Serious: Yes (Other)
  Sender: FDA-Public Use
  Company Number: US-RB-044575-12

PATIENT
  Age: 36 Year
  Sex: Male

DRUGS (3)
  1. SUBOXONE FILM [Suspect]
     Indication: DRUG DEPENDENCE
     Dosage: Suboxone film
     Route: 060
     Dates: start: 20120709
  2. KETAMINE [Suspect]
     Indication: FEELING OF RELAXATION
     Dosage: Dosing details unknown
     Route: 042
     Dates: start: 20120728, end: 20120728
  3. ATENOLOL [Concomitant]
     Indication: HYPERTENSION
     Dosage: Dosing details unknown
     Route: 065

REACTIONS (5)
  - Pain in extremity [Unknown]
  - Muscle rupture [Unknown]
  - Convulsion [Recovered/Resolved]
  - Deafness [Recovered/Resolved]
  - Tachycardia [Recovered/Resolved]
